FAERS Safety Report 8524936-5 (Version None)
Quarter: 2012Q3

REPORT INFORMATION
  Report Type: 
  Country: None (occurrence: None)
  Receive Date: 20120720
  Receipt Date: 20120713
  Transmission Date: 20120928
  Serious: Yes (Hospitalization, Other)
  Sender: FDA-Public Use
  Company Number: US-009507513-1108USA01235

PATIENT

DRUGS (3)
  1. FOSAMAX [Suspect]
     Indication: OSTEOPOROSIS
     Dosage: 70 MG, QW
     Route: 048
     Dates: start: 20050312, end: 20080101
  2. FOSAMAX [Suspect]
     Dosage: 70 MG, QW
     Route: 048
     Dates: start: 20080531, end: 20100420
  3. ACTONEL [Concomitant]
     Indication: OSTEOPOROSIS
     Dosage: 35 MG, QW
     Route: 048
     Dates: start: 20030101, end: 20050312

REACTIONS (22)
  - TOOTH DISORDER [None]
  - HAEMANGIOMA OF LIVER [None]
  - VON WILLEBRAND'S DISEASE [None]
  - THYROID NEOPLASM [None]
  - UTERINE DISORDER [None]
  - BREAST CANCER STAGE I [None]
  - ARTHROPATHY [None]
  - HYPERTENSION [None]
  - CORONARY ARTERY DISEASE [None]
  - BRADYCARDIA [None]
  - CLOSTRIDIAL INFECTION [None]
  - FEMUR FRACTURE [None]
  - DEEP VEIN THROMBOSIS [None]
  - RHEUMATOID ARTHRITIS [None]
  - OVERDOSE [None]
  - FIBROMYALGIA [None]
  - NEUROMA [None]
  - CONCUSSION [None]
  - SYNCOPE [None]
  - MIGRAINE [None]
  - NEPHROLITHIASIS [None]
  - CARDIAC MURMUR [None]
